FAERS Safety Report 9938113 (Version 1)
Quarter: 2014Q1

REPORT INFORMATION
  Report Type: Report from Study
  Country: US (occurrence: US)
  Receive Date: 20140303
  Receipt Date: 20140303
  Transmission Date: 20141002
  Serious: Yes (Other)
  Sender: FDA-Public Use
  Company Number: US-ROCHE-1343699

PATIENT
  Age: 75 Year
  Sex: Male

DRUGS (36)
  1. LUCENTIS [Suspect]
     Indication: MACULAR DEGENERATION
     Dosage: LEFT EYE
     Route: 050
     Dates: start: 20081126
  2. LUCENTIS [Suspect]
     Indication: RETINAL VEIN OCCLUSION
     Dosage: LEFT EYE
     Route: 050
     Dates: start: 20090107
  3. LUCENTIS [Suspect]
     Dosage: LEFT AND RIGHT EYE
     Route: 050
     Dates: start: 20090211
  4. LUCENTIS [Suspect]
     Dosage: RIGHT EYE
     Route: 050
     Dates: start: 20090429
  5. LUCENTIS [Suspect]
     Dosage: RIGHT EYE
     Route: 050
     Dates: start: 20090527
  6. LUCENTIS [Suspect]
     Dosage: LEFT EYE
     Route: 050
     Dates: start: 20090604
  7. LUCENTIS [Suspect]
     Dosage: RIGHT EYE
     Route: 050
     Dates: start: 20090624
  8. LUCENTIS [Suspect]
     Route: 050
     Dates: start: 20090708
  9. LUCENTIS [Suspect]
     Route: 050
     Dates: start: 20090805
  10. LUCENTIS [Suspect]
     Route: 050
     Dates: start: 20090930
  11. LUCENTIS [Suspect]
     Route: 050
     Dates: start: 20091106
  12. LUCENTIS [Suspect]
     Route: 050
     Dates: start: 20091209
  13. LUCENTIS [Suspect]
     Route: 050
     Dates: start: 20100113
  14. LUCENTIS [Suspect]
     Dosage: LEFT EYE
     Route: 050
     Dates: start: 20100120
  15. LUCENTIS [Suspect]
     Route: 050
     Dates: start: 20100217
  16. LUCENTIS [Suspect]
     Route: 050
     Dates: start: 20100324
  17. LUCENTIS [Suspect]
     Dosage: RIGHT EYE
     Route: 050
     Dates: start: 20100331
  18. LUCENTIS [Suspect]
     Dosage: LEFT EYE
     Route: 050
     Dates: start: 20100512
  19. LUCENTIS [Suspect]
     Dosage: RIGHT EYE
     Route: 050
     Dates: start: 20100519
  20. LUCENTIS [Suspect]
     Dosage: LEFT EYE
     Route: 050
     Dates: start: 20100616
  21. LUCENTIS [Suspect]
     Dosage: RIGHT EYE
     Route: 050
     Dates: start: 20100811
  22. LUCENTIS [Suspect]
     Dosage: RIGHT EYE
     Route: 050
     Dates: start: 20100922
  23. LUCENTIS [Suspect]
     Dosage: RIGHT EYE
     Route: 050
     Dates: start: 20100929
  24. LUCENTIS [Suspect]
     Dosage: LEFT EYE
     Route: 050
     Dates: start: 20101027
  25. LUCENTIS [Suspect]
     Dosage: RIGHT EYE
     Route: 050
     Dates: start: 20101028
  26. LUCENTIS [Suspect]
     Dosage: LEFT EYE
     Route: 050
     Dates: start: 20101215
  27. AVASTIN [Suspect]
     Indication: PRODUCT USED FOR UNKNOWN INDICATION
     Dosage: RIGHT EYE
     Route: 050
     Dates: start: 20081022
  28. AVASTIN [Suspect]
     Dosage: RIGHT EYE
     Route: 050
     Dates: start: 20110209
  29. AVASTIN [Suspect]
     Dosage: RIGHT EYE
     Route: 050
     Dates: start: 20110309
  30. MAXITROL [Concomitant]
     Dosage: AS DIRECTED
     Route: 065
  31. COSOPT [Concomitant]
     Dosage: 2-0.5% BID RIGHT EYE
     Route: 065
  32. CITRACAL [Concomitant]
     Dosage: 250-200 MG-UNIT
     Route: 065
  33. SIMVASTATIN [Concomitant]
  34. LEVOTHYROXINE [Concomitant]
     Route: 065
  35. TRAZODONE [Concomitant]
     Route: 065
  36. POLYTRIM [Concomitant]
     Route: 047

REACTIONS (10)
  - Eyelid infection [Unknown]
  - Eczema eyelids [Unknown]
  - Eye discharge [Unknown]
  - Vision blurred [Unknown]
  - Visual acuity reduced [Unknown]
  - Retinal haemorrhage [Unknown]
  - Macular degeneration [Unknown]
  - Eyelid ptosis [Unknown]
  - Skin discolouration [Unknown]
  - Drug ineffective [Unknown]
